FAERS Safety Report 9669490 (Version 1)
Quarter: 2013Q4

REPORT INFORMATION
  Report Type: Spontaneous
  Country: IT (occurrence: IT)
  Receive Date: 20131105
  Receipt Date: 20131105
  Transmission Date: 20140711
  Serious: Yes (Other)
  Sender: FDA-Public Use
  Company Number: IT-ROXANE LABORATORIES, INC.-2013-RO-01762RO

PATIENT
  Age: 21 Year
  Sex: Female

DRUGS (10)
  1. CYCLOPHOSPHAMIDE TABLETS USP [Suspect]
     Indication: ACUTE LYMPHOCYTIC LEUKAEMIA
  2. CYCLOPHOSPHAMIDE TABLETS USP [Suspect]
     Indication: BONE MARROW TRANSPLANT
  3. MYCOPHENOLATE MOFETIL [Suspect]
     Indication: PROPHYLAXIS AGAINST GRAFT VERSUS HOST DISEASE
  4. ETOPOSIDE [Suspect]
     Indication: ACUTE LYMPHOCYTIC LEUKAEMIA
  5. NELARABINE [Suspect]
     Indication: ACUTE LYMPHOCYTIC LEUKAEMIA
  6. NELARABINE [Suspect]
     Indication: BONE MARROW TRANSPLANT
  7. THIOTEPA [Suspect]
     Indication: BONE MARROW TRANSPLANT
  8. RABBIT ANTITHYMOCYTE GLOBULIN [Suspect]
     Indication: BONE MARROW TRANSPLANT
  9. CYCLOSPORINE [Suspect]
     Indication: PROPHYLAXIS AGAINST GRAFT VERSUS HOST DISEASE
  10. ACICLOVIR [Suspect]
     Indication: ANTIVIRAL PROPHYLAXIS
     Route: 042

REACTIONS (9)
  - Stevens-Johnson syndrome [Recovered/Resolved]
  - Polyomavirus test positive [Recovered/Resolved]
  - Bone marrow failure [Unknown]
  - BK virus infection [Unknown]
  - Cystitis haemorrhagic [Recovered/Resolved]
  - Herpes simplex [Recovered/Resolved]
  - Mucosal inflammation [Recovered/Resolved]
  - Oesophagitis [Unknown]
  - Graft versus host disease in skin [Unknown]
